FAERS Safety Report 5480058-1 (Version None)
Quarter: 2007Q4

REPORT INFORMATION
  Report Type: 
  Country: None (occurrence: None)
  Receive Date: 20071008
  Receipt Date: 20070926
  Transmission Date: 20080405
  Serious: Yes (Other)
  Sender: FDA-Public Use
  Company Number: US-PFIZER INC-2007080967

PATIENT
  Sex: Male
  Weight: 86.4 kg

DRUGS (6)
  1. NEURONTIN [Suspect]
     Indication: NEUROPATHY
     Dosage: DAILY DOSE:900MG
  2. NEURONTIN [Suspect]
     Indication: NERVE INJURY
  3. MOBIC [Concomitant]
  4. TRAMADOL HCL [Concomitant]
  5. PRAMIPEXOLE [Concomitant]
  6. LUNESTA [Concomitant]

REACTIONS (2)
  - ELBOW OPERATION [None]
  - TOOTH FRACTURE [None]
